FAERS Safety Report 17339791 (Version 1)
Quarter: 2020Q1

REPORT INFORMATION
  Report Type: Spontaneous
  Country: JP (occurrence: JP)
  Receive Date: 20200129
  Receipt Date: 20200129
  Transmission Date: 20200409
  Serious: Yes (Other)
  Sender: FDA-Public Use
  Company Number: JP-PFIZER INC-2020035208

PATIENT
  Age: 43 Year
  Sex: Female

DRUGS (1)
  1. CABASER 0.25MG [Suspect]
     Active Substance: CABERGOLINE
     Dosage: UNK
     Dates: start: 201808, end: 201902

REACTIONS (1)
  - Drug-induced liver injury [Unknown]
